FAERS Safety Report 23589680 (Version 1)
Quarter: 2024Q1

REPORT INFORMATION
  Report Type: Spontaneous
  Country: KR (occurrence: KR)
  Receive Date: 20240304
  Receipt Date: 20240304
  Transmission Date: 20240410
  Serious: Yes (Other)
  Sender: FDA-Public Use
  Company Number: KR-NOVOPROD-1182781

PATIENT
  Age: 70 Year
  Sex: Female

DRUGS (2)
  1. TRESIBA [Suspect]
     Active Substance: INSULIN DEGLUDEC
     Indication: Chronic kidney disease
     Dosage: UNK (DURATION OF ADMINISTRATION: 312 DAYS)
     Route: 058
     Dates: start: 20190616, end: 20200723
  2. GLICLAZIDE [Suspect]
     Active Substance: GLICLAZIDE
     Indication: Chronic kidney disease
     Dosage: UNK (DURATION OF ADMINISTARTION: 312 DAYS)
     Route: 048
     Dates: start: 20190916, end: 20200723

REACTIONS (5)
  - Decreased appetite [Recovering/Resolving]
  - Headache [Recovering/Resolving]
  - Hyperhidrosis [Recovering/Resolving]
  - Hypoglycaemia [Recovering/Resolving]
  - Product use in unapproved indication [Unknown]

NARRATIVE: CASE EVENT DATE: 20190616
